FAERS Safety Report 19046729 (Version 2)
Quarter: 2021Q1

REPORT INFORMATION
  Report Type: Spontaneous
  Country: JP (occurrence: JP)
  Receive Date: 20210323
  Receipt Date: 20210330
  Transmission Date: 20210420
  Serious: Yes (Hospitalization)
  Sender: FDA-Public Use
  Company Number: JP-AMGEN-JPNSP2021040694

PATIENT
  Age: 82 Year
  Sex: Female

DRUGS (1)
  1. EVENITY [Suspect]
     Active Substance: ROMOSOZUMAB-AQQG
     Indication: OSTEOPOROSIS
     Dosage: 210 MILLIGRAM
     Route: 058

REACTIONS (13)
  - Musculoskeletal stiffness [Recovering/Resolving]
  - Cough [Unknown]
  - Eye pain [Recovering/Resolving]
  - Back pain [Unknown]
  - Gingival disorder [Unknown]
  - Pain in extremity [Recovering/Resolving]
  - Dysphonia [Unknown]
  - Musculoskeletal chest pain [Recovering/Resolving]
  - Memory impairment [Unknown]
  - Gait inability [Unknown]
  - Toothache [Unknown]
  - Ear pain [Unknown]
  - Mass [Unknown]
